FAERS Safety Report 14833572 (Version 2)
Quarter: 2018Q2

REPORT INFORMATION
  Report Type: Spontaneous
  Country: JP (occurrence: JP)
  Receive Date: 20180501
  Receipt Date: 20180524
  Transmission Date: 20180711
  Serious: Yes (Hospitalization)
  Sender: FDA-Public Use
  Company Number: JP-FERRINGPH-2018FE02108

PATIENT

DRUGS (10)
  1. HCG [Suspect]
     Active Substance: GONADOTROPHIN, CHORIONIC
     Indication: PRODUCT USED FOR UNKNOWN INDICATION
     Dosage: AT ONSET
  2. CLOMIFENE CITRATE [Suspect]
     Active Substance: CLOMIPHENE
     Indication: OVULATION INDUCTION
     Dosage: 2 MONTHS BEFORE
  3. MENOTROPHIN [Suspect]
     Active Substance: MENOTROPINS
     Dosage: 4 MONTHS BEFORE ONSET
     Route: 065
  4. RISPERIDONE. [Concomitant]
     Active Substance: RISPERIDONE
     Indication: SCHIZOPHRENIA
  5. CLOMIFENE CITRATE [Suspect]
     Active Substance: CLOMIPHENE
     Dosage: 4 MONTHS BEFORE
  6. MENOTROPHIN [Suspect]
     Active Substance: MENOTROPINS
     Dosage: AT ONSET
     Route: 065
  7. BIPERIDEN HYDROCHLORIDE [Concomitant]
     Active Substance: BIPERIDEN HYDROCHLORIDE
     Indication: SCHIZOPHRENIA
  8. MENOTROPHIN [Suspect]
     Active Substance: MENOTROPINS
     Dosage: 2 MONTHS BEFORE ONSET
     Route: 065
  9. MENOTROPHIN [Suspect]
     Active Substance: MENOTROPINS
     Dosage: 7 MONTHS BEFORE ONSET
     Route: 065
  10. CABERGOLINE. [Concomitant]
     Active Substance: CABERGOLINE
     Indication: HYPERPROLACTINAEMIA

REACTIONS (2)
  - Deep vein thrombosis [Recovered/Resolved]
  - Pulmonary embolism [Recovered/Resolved]
